FAERS Safety Report 16926649 (Version 3)
Quarter: 2020Q4

REPORT INFORMATION
  Report Type: Spontaneous
  Country: US (occurrence: US)
  Receive Date: 20191016
  Receipt Date: 20201007
  Transmission Date: 20210113
  Serious: No
  Sender: FDA-Public Use
  Company Number: US-SA-2019SA284507

PATIENT

DRUGS (5)
  1. DUPIXENT [Suspect]
     Active Substance: DUPILUMAB
     Dosage: 300 MG, QOW
     Route: 058
     Dates: start: 20200919
  2. DUPIXENT [Suspect]
     Active Substance: DUPILUMAB
     Dosage: 300 MG, QOW
     Route: 058
     Dates: start: 2019
  3. PREVNAR [Concomitant]
     Active Substance: PNEUMOCOCCAL 7-VALENT CONJUGATE VACCINE (DIPHTHERIA CRM197 PROTEIN)
  4. DUPIXENT [Suspect]
     Active Substance: DUPILUMAB
     Dosage: 2 DF, QOW
     Route: 058
     Dates: start: 2019, end: 2019
  5. DUPIXENT [Suspect]
     Active Substance: DUPILUMAB
     Indication: NASAL POLYPS
     Dosage: 2 DF, 1X
     Route: 058
     Dates: start: 201909, end: 201909

REACTIONS (3)
  - Product use issue [Unknown]
  - Anxiety [Unknown]
  - Extra dose administered [Unknown]

NARRATIVE: CASE EVENT DATE: 2019
